FAERS Safety Report 7355149-0 (Version None)
Quarter: 2011Q1

REPORT INFORMATION
  Report Type: 
  Country: None (occurrence: None)
  Receive Date: 20110307
  Receipt Date: 20100503
  Transmission Date: 20110831
  Serious: No
  Sender: FDA-Public Use
  Company Number: AEUSA201000149

PATIENT
  Age: 59 Year
  Sex: Female
  Weight: 43.0917 kg

DRUGS (9)
  1. COMBIVENT [Concomitant]
  2. PROLASTIN-C [Suspect]
     Indication: ALPHA-1 ANTI-TRYPSIN DEFICIENCY
     Dosage: 2710 MG, QW, IV
     Route: 042
     Dates: start: 20100225
  3. FLONASE [Concomitant]
  4. AZITHROMYCIN [Concomitant]
  5. AUGMENTIN [Concomitant]
  6. SUPRAX [Concomitant]
  7. CLARITIN [Concomitant]
  8. MULTI-VITAMINS [Concomitant]
  9. CALCIUM WITH VITAMIN D [Concomitant]

REACTIONS (4)
  - OEDEMA PERIPHERAL [None]
  - PRURITUS [None]
  - ERYTHEMA [None]
  - SINUSITIS [None]
